FAERS Safety Report 14368541 (Version 5)
Quarter: 2018Q2

REPORT INFORMATION
  Report Type: Report from Study
  Country: US (occurrence: US)
  Receive Date: 20180109
  Receipt Date: 20180625
  Transmission Date: 20180711
  Serious: Yes (Hospitalization, Other)
  Sender: FDA-Public Use
  Company Number: US-ACTELION-A-NJ2018-165238

PATIENT
  Age: 71 Year
  Sex: Male
  Weight: 84.81 kg

DRUGS (2)
  1. OPSUMIT [Suspect]
     Active Substance: MACITENTAN
     Indication: PULMONARY ARTERIAL HYPERTENSION
     Dosage: 10 MG, QD
     Route: 048
     Dates: start: 20171123
  2. OXYGEN. [Concomitant]
     Active Substance: OXYGEN

REACTIONS (12)
  - Oedema [Not Recovered/Not Resolved]
  - Metastatic neoplasm [Unknown]
  - Pulmonary arterial hypertension [Recovered/Resolved]
  - Fatigue [Not Recovered/Not Resolved]
  - Pain in extremity [Unknown]
  - Right ventricular failure [Not Recovered/Not Resolved]
  - Chest pain [Unknown]
  - Dyspnoea [Not Recovered/Not Resolved]
  - Oxygen therapy [Unknown]
  - Pulmonary arterial pressure increased [Unknown]
  - Oedema peripheral [Unknown]
  - Anaemia [Unknown]

NARRATIVE: CASE EVENT DATE: 20180316
